FAERS Safety Report 10592379 (Version 1)
Quarter: 2014Q4

REPORT INFORMATION
  Report Type: Spontaneous
  Country: CA (occurrence: None)
  Receive Date: 20141117
  Receipt Date: 20141117
  Transmission Date: 20150529
  Serious: Yes (Other)
  Sender: FDA-Public Use
  Company Number: CA-016891

PATIENT
  Age: 77 Year
  Sex: Male

DRUGS (11)
  1. TRELSTAR [Concomitant]
     Active Substance: TRIPTORELIN PAMOATE
  2. COVERSYL /00790703/ [Concomitant]
     Active Substance: PERINDOPRIL
  3. TAMSULOSIN [Concomitant]
     Active Substance: TAMSULOSIN
  4. LIPITOR [Concomitant]
     Active Substance: ATORVASTATIN CALCIUM
  5. DIAMICRON [Concomitant]
     Active Substance: GLICLAZIDE
  6. MORPHINE [Concomitant]
     Active Substance: MORPHINE
  7. LORAZEPAM. [Concomitant]
     Active Substance: LORAZEPAM
  8. JANUMET [Concomitant]
     Active Substance: METFORMIN HYDROCHLORIDE\SITAGLIPTIN PHOSPHATE
  9. FENTANYL. [Concomitant]
     Active Substance: FENTANYL
  10. GLYBURIDE. [Concomitant]
     Active Substance: GLYBURIDE
  11. DEGARELIX [Suspect]
     Active Substance: DEGARELIX
     Indication: PROSTATE CANCER
     Route: 058
     Dates: start: 20140626

REACTIONS (13)
  - Musculoskeletal chest pain [None]
  - Vomiting [None]
  - Back pain [None]
  - Mobility decreased [None]
  - Abdominal tenderness [None]
  - Arthralgia [None]
  - Abdominal pain [None]
  - Nausea [None]
  - Hot flush [None]
  - Malaise [None]
  - Fatigue [None]
  - Pain [None]
  - Candida infection [None]

NARRATIVE: CASE EVENT DATE: 20140626
